FAERS Safety Report 5357722-8 (Version None)
Quarter: 2007Q2

REPORT INFORMATION
  Report Type: 
  Country: None (occurrence: None)
  Receive Date: 20070614
  Receipt Date: 20070612
  Transmission Date: 20071010
  Serious: Yes (Hospitalization)
  Sender: FDA-Public Use
  Company Number: TR-ROXANE LABORATORIES, INC-2007-DE-03432GD

PATIENT
  Age: 20 Year
  Sex: Male

DRUGS (1)
  1. NAPROXEN [Suspect]
     Route: 048

REACTIONS (3)
  - DRUG ABUSER [None]
  - PANCREATITIS ACUTE [None]
  - SUICIDE ATTEMPT [None]
